FAERS Safety Report 7583497-8 (Version None)
Quarter: 2011Q2

REPORT INFORMATION
  Report Type: 
  Country: None (occurrence: None)
  Receive Date: 20110630
  Receipt Date: 20110620
  Transmission Date: 20111010
  Serious: Yes (Death, Hospitalization)
  Sender: FDA-Public Use
  Company Number: JP-ROCHE-773481

PATIENT
  Sex: Female

DRUGS (12)
  1. GANCICLOVIR SODIUM [Suspect]
     Indication: CYTOMEGALOVIRUS INFECTION
     Route: 041
     Dates: start: 20110418, end: 20110421
  2. VANCOMYCIN [Suspect]
     Route: 041
     Dates: start: 20110414, end: 20110421
  3. SERTRALINE HYDROCHLORIDE [Concomitant]
     Route: 048
     Dates: end: 20110427
  4. CLINORIL [Concomitant]
     Route: 048
     Dates: start: 20110404, end: 20110427
  5. MAGMITT [Concomitant]
     Route: 048
     Dates: end: 20110427
  6. BROTIZOLAM [Concomitant]
     Route: 048
     Dates: end: 20110427
  7. GANCICLOVIR SODIUM [Suspect]
     Route: 041
     Dates: start: 20110426, end: 20110502
  8. ZOSYN [Concomitant]
     Route: 041
     Dates: start: 20110422, end: 20110424
  9. FUROSEMIDE [Concomitant]
     Route: 048
     Dates: start: 20110401, end: 20110427
  10. ZOSYN [Concomitant]
     Route: 041
     Dates: start: 20110414, end: 20110422
  11. TPN ELECTROLYTES IN PLASTIC CONTAINER [Concomitant]
     Route: 041
     Dates: start: 20110414, end: 20110502
  12. CLOSTRIDIUM BUTYRICUM [Concomitant]
     Route: 048
     Dates: start: 20110419, end: 20110427

REACTIONS (2)
  - RENAL IMPAIRMENT [None]
  - BLOOD CREATININE INCREASED [None]
